FAERS Safety Report 6885601-3 (Version None)
Quarter: 2010Q3

REPORT INFORMATION
  Report Type: 
  Country: None (occurrence: None)
  Receive Date: 20100729
  Receipt Date: 20090311
  Transmission Date: 20110219
  Serious: No
  Sender: FDA-Public Use
  Company Number: US-PFIZER INC-2009174393

PATIENT
  Sex: Female

DRUGS (5)
  1. CELEBREX [Suspect]
     Indication: ARTHRITIS
     Dosage: 100 MG, 1X/DAY
     Dates: start: 20081222, end: 20090210
  2. CELEBREX [Suspect]
     Indication: BACK PAIN
  3. PROZAC [Concomitant]
     Indication: DEPRESSION
     Dosage: UNK
  4. TRICOR [Concomitant]
     Indication: BLOOD CHOLESTEROL ABNORMAL
     Dosage: UNK
  5. DEXTROAMPHETAMINE [Concomitant]
     Indication: SOMNOLENCE
     Dosage: UNK

REACTIONS (4)
  - PRURITUS [None]
  - RASH [None]
  - SCRATCH [None]
  - URTICARIA [None]
